FAERS Safety Report 8890742 (Version 3)
Quarter: 2013Q1

REPORT INFORMATION
  Report Type: Spontaneous
  Country: US (occurrence: US)
  Receive Date: 20121107
  Receipt Date: 20130103
  Transmission Date: 20140127
  Serious: Yes (Other)
  Sender: FDA-Public Use
  Company Number: US-VERTEX PHARMACEUTICAL INC.-2012-024075

PATIENT
  Sex: Male
  Weight: 102.4 kg

DRUGS (8)
  1. INCIVEK [Suspect]
     Indication: HEPATITIS C
     Dosage: 1650 MG, TID
     Route: 048
     Dates: start: 20110930, end: 20111223
  2. PEGINTERFERON ALFA-2A [Suspect]
     Indication: HEPATITIS C
     Dosage: 180 ?G, QW
     Route: 058
  3. RIBAVIRIN [Suspect]
     Indication: HEPATITIS C
     Dosage: 1200 MG, QD
     Route: 048
  4. SYNTHROID [Concomitant]
  5. ASPIRIN [Concomitant]
  6. LOSARTAN [Concomitant]
  7. ATENOLOL [Concomitant]
  8. MAGIC SWIZZLE MOUTHWASH [Concomitant]

REACTIONS (3)
  - Drug reaction with eosinophilia and systemic symptoms [Recovered/Resolved]
  - Pityriasis rubra pilaris [Recovered/Resolved]
  - Anaemia [Recovered/Resolved]
